FAERS Safety Report 8445831-6 (Version None)
Quarter: 2012Q2

REPORT INFORMATION
  Report Type: 
  Country: None (occurrence: None)
  Receive Date: 20120618
  Receipt Date: 20120509
  Transmission Date: 20120825
  Serious: Yes (Death, Hospitalization, Other)
  Sender: FDA-Public Use
  Company Number: CH-TEVA-201100259

PATIENT
  Sex: Male

DRUGS (2)
  1. CLARITHROMYCIN [Suspect]
     Indication: CROHN'S DISEASE
     Dosage: 750 MILLIGRAM; STRENGTH: 250 MG
     Route: 048
     Dates: start: 20101201, end: 20120130
  2. MYCOBUTIN [Suspect]
     Indication: CROHN'S DISEASE
     Dosage: 300 MILLIGRAM;
     Dates: start: 20101201, end: 20120130

REACTIONS (6)
  - COMPLETED SUICIDE [None]
  - FATIGUE [None]
  - PSYCHOTIC DISORDER [None]
  - MANIA [None]
  - CONFUSIONAL STATE [None]
  - OFF LABEL USE [None]
